FAERS Safety Report 8218717-X (Version None)
Quarter: 2012Q1

REPORT INFORMATION
  Report Type: 
  Country: None (occurrence: None)
  Receive Date: 20120319
  Receipt Date: 20120311
  Transmission Date: 20120608
  Serious: Yes (Hospitalization)
  Sender: FDA-Public Use
  Company Number: PHHO2010HK10471

PATIENT
  Sex: Male
  Weight: 65 kg

DRUGS (4)
  1. INSULIN [Concomitant]
  2. AVASTIN [Suspect]
     Indication: METASTATIC RENAL CELL CARCINOMA
     Dosage: 550 MG EVERY TWO WEEKS
     Route: 042
     Dates: start: 20100112
  3. AFINITOR [Suspect]
     Indication: RENAL CANCER METASTATIC
     Dosage: 5 MG, QD
     Route: 048
     Dates: start: 20100112, end: 20100719
  4. PROTAPHAN [Concomitant]
     Indication: DIABETES MELLITUS

REACTIONS (2)
  - THROMBOCYTOPENIA [None]
  - HYPOGLYCAEMIA [None]
